FAERS Safety Report 6213895-6 (Version None)
Quarter: 2009Q2

REPORT INFORMATION
  Report Type: 
  Country: None (occurrence: None)
  Receive Date: 20090602
  Receipt Date: 20090602
  Transmission Date: 20091009
  Serious: Yes (Life-Threatening, Hospitalization, Disabling, Other)
  Sender: FDA-Public Use
  Company Number: None

PATIENT
  Age: 72 Year
  Sex: Female
  Weight: 66.2252 kg

DRUGS (1)
  1. AMIODARONE HCL [Suspect]
     Indication: ARRHYTHMIA
     Dosage: NOT SURE IV
     Route: 042
     Dates: start: 20090402, end: 20090407

REACTIONS (13)
  - ASTHENIA [None]
  - ATRIAL FIBRILLATION [None]
  - DEPRESSION [None]
  - DYSKINESIA [None]
  - DYSPHAGIA [None]
  - FEAR [None]
  - HALLUCINATION [None]
  - HEPATIC FUNCTION ABNORMAL [None]
  - HYPERHIDROSIS [None]
  - PNEUMONIA [None]
  - RENAL IMPAIRMENT [None]
  - THYROID DISORDER [None]
  - WEIGHT DECREASED [None]
